FAERS Safety Report 22224048 (Version 1)
Quarter: 2023Q2

REPORT INFORMATION
  Report Type: Spontaneous
  Country: US (occurrence: None)
  Receive Date: 20230417
  Receipt Date: 20230417
  Transmission Date: 20230722
  Serious: Yes (Other)
  Sender: FDA-Public Use
  Company Number: None

PATIENT
  Age: 64 Year
  Sex: Female
  Weight: 72 kg

DRUGS (18)
  1. PRALUENT [Suspect]
     Active Substance: ALIROCUMAB
     Indication: Blood cholesterol increased
     Dosage: 1  INJECTION 1 EVERY 14 DAYS SUBCUTANEOUS?
     Route: 058
     Dates: start: 20230318, end: 20230318
  2. CLOPIDOGREL [Concomitant]
     Active Substance: CLOPIDOGREL BISULFATE
  3. METOPROLOL [Concomitant]
     Active Substance: METOPROLOL
  4. ACYCLOVIR [Concomitant]
     Active Substance: ACYCLOVIR
  5. VASCEPA [Concomitant]
     Active Substance: ICOSAPENT ETHYL
  6. ASPIRIN [Concomitant]
     Active Substance: ASPIRIN
  7. CHROMIUM PICOLINATE [Concomitant]
     Active Substance: CHROMIUM PICOLINATE
  8. CALCIUM CITRATE [Concomitant]
     Active Substance: CALCIUM CITRATE
  9. PYRIDOXINE HYDROCHLORIDE [Concomitant]
     Active Substance: PYRIDOXINE HYDROCHLORIDE
  10. VITAMIN C [Concomitant]
     Active Substance: ASCORBIC ACID
  11. MAGNESIUM [Concomitant]
     Active Substance: MAGNESIUM
  12. POTASSIUM [Concomitant]
     Active Substance: POTASSIUM
  13. VITAMIN E [Concomitant]
     Active Substance: .ALPHA.-TOCOPHEROL
  14. GARLIC [Concomitant]
     Active Substance: GARLIC
  15. VITAMIN D3 [Concomitant]
     Active Substance: CHOLECALCIFEROL
  16. ZINC [Concomitant]
     Active Substance: ZINC
  17. B2 [Concomitant]
  18. VITAMINS [Concomitant]
     Active Substance: VITAMINS

REACTIONS (7)
  - Paraesthesia [None]
  - Feeling hot [None]
  - Pruritus [None]
  - Tongue disorder [None]
  - Lip disorder [None]
  - Dyspnoea [None]
  - Sinus disorder [None]

NARRATIVE: CASE EVENT DATE: 20230320
